FAERS Safety Report 7864336-4 (Version None)
Quarter: 2011Q4

REPORT INFORMATION
  Report Type: 
  Country: None (occurrence: None)
  Receive Date: 20111028
  Receipt Date: 20111018
  Transmission Date: 20120403
  Serious: Yes (Hospitalization, Other)
  Sender: FDA-Public Use
  Company Number: US-BAYER-2011-011724

PATIENT
  Age: 27 Year
  Sex: Female
  Weight: 61.224 kg

DRUGS (19)
  1. VITAMIN K TAB [Concomitant]
  2. ZOFRAN [Concomitant]
  3. ZOLOFT [Concomitant]
  4. YASMIN [Suspect]
     Indication: CONTRACEPTION
     Dosage: UNK
     Route: 048
     Dates: start: 19990101, end: 20090101
  5. XANAX [Concomitant]
  6. CHANTIX [Concomitant]
  7. YAZ [Suspect]
     Indication: CONTRACEPTION
     Dosage: UNK
     Route: 048
     Dates: start: 19990101, end: 20090101
  8. PERCOCET [Concomitant]
     Dosage: UNK
     Dates: start: 20081201
  9. PERCOCET [Concomitant]
     Dosage: UNK
     Route: 048
     Dates: end: 20081117
  10. NICOTINE [Concomitant]
     Dosage: 21 MG, UNK
  11. LORTAB [Concomitant]
  12. DROSPIRENONE AND ETHINYL ESTRADIOL [Suspect]
     Indication: CONTRACEPTION
     Dosage: UNK
     Route: 048
     Dates: start: 19990101, end: 20090101
  13. PROVIGIL [Concomitant]
  14. CIPROFLOXACIN [Concomitant]
  15. ROZEREM [Concomitant]
  16. CYMBALTA [Concomitant]
  17. NICODERM [Concomitant]
  18. DARVOCET [Concomitant]
  19. FRESH FROZEN PLASMA [Concomitant]

REACTIONS (10)
  - DEEP VEIN THROMBOSIS [None]
  - COLITIS [None]
  - HEPATIC FUNCTION ABNORMAL [None]
  - PAIN [None]
  - ANGINA PECTORIS [None]
  - GASTROINTESTINAL DISORDER [None]
  - PULMONARY EMBOLISM [None]
  - GALLBLADDER DISORDER [None]
  - INTESTINAL OBSTRUCTION [None]
  - CHEST PAIN [None]
